FAERS Safety Report 24692507 (Version 1)
Quarter: 2024Q4

REPORT INFORMATION
  Report Type: Spontaneous
  Country: US (occurrence: None)
  Receive Date: 20241203
  Receipt Date: 20241203
  Transmission Date: 20250114
  Serious: No
  Sender: Public
  Company Number: None

PATIENT
  Age: 31 Year
  Sex: Male

DRUGS (1)
  1. TIRZEPATIDE [Suspect]
     Active Substance: TIRZEPATIDE
     Indication: Weight decreased

REACTIONS (8)
  - Abdominal pain upper [None]
  - Gastrointestinal ulcer [None]
  - Abdominal distension [None]
  - Constipation [None]
  - Nausea [None]
  - Vomiting [None]
  - Gastrooesophageal reflux disease [None]
  - Therapy cessation [None]

NARRATIVE: CASE EVENT DATE: 20240619
